FAERS Safety Report 19150241 (Version 1)
Quarter: 2021Q2

REPORT INFORMATION
  Report Type: Spontaneous
  Country: HR (occurrence: HR)
  Receive Date: 20210418
  Receipt Date: 20210418
  Transmission Date: 20210717
  Serious: Yes (Other)
  Sender: FDA-Public Use
  Company Number: HR-JNJFOC-20210423503

PATIENT
  Age: 85 Year
  Sex: Female

DRUGS (6)
  1. XARELTO [Suspect]
     Active Substance: RIVAROXABAN
     Indication: PRODUCT USED FOR UNKNOWN INDICATION
     Dosage: 15 MG, QD
     Route: 048
     Dates: start: 202012
  2. FUROSEMIDE. [Concomitant]
     Active Substance: FUROSEMIDE
     Route: 042
  3. METHYL?DIGOXIN [Concomitant]
     Active Substance: METILDIGOXIN
  4. FOLACIN [FOLIC ACID] [Concomitant]
     Active Substance: FOLIC ACID
     Indication: IMMUNE THROMBOCYTOPENIA
     Dosage: 2X1
  5. DECORTIN [Concomitant]
     Active Substance: PREDNISONE
     Indication: IMMUNE THROMBOCYTOPENIA
     Dosage: 20 MG, QOD
  6. OXYGEN. [Concomitant]
     Active Substance: OXYGEN

REACTIONS (11)
  - Blood urea increased [Recovering/Resolving]
  - Haemoglobin decreased [Unknown]
  - General physical condition abnormal [Unknown]
  - Renal failure [Unknown]
  - Renal impairment [Unknown]
  - Haematuria [Unknown]
  - Blood creatinine increased [Recovering/Resolving]
  - Fluid intake reduced [Recovering/Resolving]
  - C-reactive protein increased [Unknown]
  - Urinary tract infection [Recovering/Resolving]
  - Hypophagia [Unknown]
